FAERS Safety Report 5452540-4 (Version None)
Quarter: 2007Q3

REPORT INFORMATION
  Report Type: 
  Country: None (occurrence: None)
  Receive Date: 20070813
  Receipt Date: 20070405
  Transmission Date: 20080115
  Serious: Yes (Hospitalization)
  Sender: FDA-Public Use
  Company Number: 20073552

PATIENT
  Sex: Male

DRUGS (1)
  1. LIORESAL INTRATHECAL(BACLOFEN INJECTION) 2000 MCG/MLM [Suspect]
     Indication: MUSCLE SPASTICITY
     Dosage: MCG, DAILY, INTRATHECAL
     Route: 037

REACTIONS (3)
  - COMA [None]
  - DYSPNOEA [None]
  - OVERDOSE [None]
